FAERS Safety Report 8238453-3 (Version None)
Quarter: 2012Q1

REPORT INFORMATION
  Report Type: 
  Country: None (occurrence: None)
  Receive Date: 20120327
  Receipt Date: 20120319
  Transmission Date: 20120608
  Serious: Yes (Other)
  Sender: FDA-Public Use
  Company Number: CH-TEVA-328947ISR

PATIENT
  Age: 25 Year
  Sex: Female

DRUGS (3)
  1. TOPIRAMATE [Suspect]
     Indication: STATUS EPILEPTICUS
     Dosage: TITRATED TO MAXIMAL DOSAGE OF 800 MG/DAY OVER 11 DAYS
  2. CLONAZEPAM [Concomitant]
     Indication: STATUS EPILEPTICUS
     Route: 065
  3. PHENYTOIN [Concomitant]
     Indication: STATUS EPILEPTICUS
     Route: 065

REACTIONS (2)
  - SEPSIS [None]
  - NEPHROLITHIASIS [None]
